FAERS Safety Report 5095564-1 (Version None)
Quarter: 2006Q3

REPORT INFORMATION
  Report Type: 
  Country: None (occurrence: None)
  Receive Date: 20060901
  Receipt Date: 20060822
  Transmission Date: 20061208
  Serious: Yes (Death, Hospitalization)
  Sender: FDA-Public Use
  Company Number: US-ABBOTT-06P-163-0341503-00

PATIENT
  Sex: Female
  Weight: 39.952 kg

DRUGS (19)
  1. SYNTHROID [Suspect]
     Indication: HYPOTHYROIDISM
     Route: 048
     Dates: start: 20060808, end: 20060809
  2. SYNTHROID [Suspect]
     Route: 048
     Dates: start: 19960101, end: 20060731
  3. COAG [Concomitant]
     Indication: CARDIAC DISORDER
     Route: 048
  4. SPIRONOLACTONE [Concomitant]
     Indication: DIURETIC THERAPY
     Route: 048
  5. ATORVASTATIN CALCIUM [Concomitant]
     Indication: BLOOD CHOLESTEROL
     Route: 048
  6. GLUCOPHAGE [Concomitant]
     Indication: DIABETES MELLITUS
     Route: 048
  7. POTASSIUM CHLORIDE [Concomitant]
     Indication: BLOOD POTASSIUM
  8. FUROSEMIDE [Concomitant]
     Indication: DIURETIC THERAPY
  9. EUROMAG [Concomitant]
     Indication: CARDIAC DISORDER
  10. COUMADIN [Concomitant]
     Indication: ANTICOAGULANT THERAPY
  11. DIGOXIN [Concomitant]
     Indication: ARRHYTHMIA
  12. DIGOXIN [Concomitant]
     Indication: BLOOD PRESSURE
  13. ASPIRIN [Concomitant]
     Indication: ANTICOAGULANT THERAPY
  14. ULTACE [Concomitant]
     Indication: DIURETIC THERAPY
  15. ULTACE [Concomitant]
     Indication: BLOOD PRESSURE
  16. MICALCIN [Concomitant]
     Indication: BACK PAIN
  17. DOCUSATE SODIUM [Concomitant]
     Indication: CONSTIPATION PROPHYLAXIS
  18. MORPHINE [Concomitant]
     Indication: BACK PAIN
  19. GLACOLAX [Concomitant]
     Indication: LAXATIVE SUPPORTIVE CARE

REACTIONS (7)
  - CEREBRAL HAEMORRHAGE [None]
  - COAGULATION TIME PROLONGED [None]
  - CONSTIPATION [None]
  - FALL [None]
  - FATIGUE [None]
  - LUNG INFECTION [None]
  - URINARY TRACT INFECTION [None]
